FAERS Safety Report 23813637 (Version 1)
Quarter: 2024Q2

REPORT INFORMATION
  Report Type: Other
  Country: US (occurrence: None)
  Receive Date: 20240503
  Receipt Date: 20240503
  Transmission Date: 20240716
  Serious: No
  Sender: FDA-Public Use
  Company Number: US-ROCHE-3554987

PATIENT
  Age: 43 Year
  Sex: Female

DRUGS (1)
  1. OCREVUS [Suspect]
     Active Substance: OCRELIZUMAB
     Indication: Primary progressive multiple sclerosis
     Dosage: DATE OF TREATMENT: 08/SEP/2023
     Route: 065
     Dates: start: 20220316

REACTIONS (5)
  - Pneumonia [Unknown]
  - Escherichia infection [Unknown]
  - Viral infection [Unknown]
  - Bacterial infection [Unknown]
  - Urinary tract infection [Unknown]
